FAERS Safety Report 10176268 (Version 1)
Quarter: 2014Q2

REPORT INFORMATION
  Report Type: Spontaneous
  Country: US (occurrence: US)
  Receive Date: 20140516
  Receipt Date: 20140516
  Transmission Date: 20141212
  Serious: No
  Sender: FDA-Public Use
  Company Number: US-PFIZER INC-2014132913

PATIENT
  Age: 70 Year
  Sex: Female
  Weight: 56.69 kg

DRUGS (3)
  1. LYRICA [Suspect]
     Indication: NEUROPATHY PERIPHERAL
     Dosage: 80 MG, 2X/DAY
     Dates: start: 201403, end: 201403
  2. LYRICA [Suspect]
     Dosage: 80 MG, 1X/DAY
     Dates: start: 201403
  3. METFORMIN [Concomitant]
     Indication: DIABETES MELLITUS
     Dosage: UNK

REACTIONS (6)
  - Pain [Unknown]
  - Head discomfort [Unknown]
  - Weight increased [Unknown]
  - Myalgia [Unknown]
  - Pain in extremity [Unknown]
  - Peripheral swelling [Unknown]
